FAERS Safety Report 10219337 (Version 1)
Quarter: 2014Q2

REPORT INFORMATION
  Report Type: Report from Study
  Country: US (occurrence: US)
  Receive Date: 20140605
  Receipt Date: 20140605
  Transmission Date: 20141212
  Serious: Yes (Hospitalization)
  Sender: FDA-Public Use
  Company Number: US-ACTELION-A-NJ2014-099818

PATIENT
  Age: 64 Year
  Sex: Female

DRUGS (16)
  1. TRACLEER [Suspect]
     Indication: PULMONARY ARTERIAL HYPERTENSION
     Dosage: 125 MG, BID
     Route: 048
     Dates: start: 2005
  2. TRACLEER [Suspect]
     Dosage: 62.5 MG, BID
     Route: 048
     Dates: start: 2005, end: 2005
  3. COUMADIN [Concomitant]
     Dosage: 7.25 DAILY
     Dates: start: 2005
  4. FLUOXETINE [Concomitant]
     Dosage: 40 MG, QD
     Dates: start: 200109
  5. FUROSEMIDE [Concomitant]
     Dosage: 40 MG, QD
     Dates: start: 2002
  6. LOSARTAN [Concomitant]
     Dosage: 50 MG, QD
     Dates: start: 2002
  7. ROPINIROLE [Concomitant]
     Dosage: 4 MG, QPM
  8. OMEPRAZOLE [Concomitant]
     Dosage: 20 MG, QD
     Dates: start: 2000
  9. POTASSIUM [Concomitant]
     Dosage: 80 MEQ, QD
  10. FISH OIL [Concomitant]
     Dosage: 1200 MG, QD
  11. IRON [Concomitant]
     Dosage: 65 MG, QD
  12. VITAMIN C [Concomitant]
     Dosage: 500 MG, QD
  13. CALCIUM + VIT D [Concomitant]
     Dosage: UNK
  14. SLOW MAG [Concomitant]
     Dosage: 572 MG, QD
  15. VITAMIN D [Concomitant]
     Dosage: 2000 IU, QD
  16. FLONASE [Concomitant]
     Dosage: 2 PUFF, PRN

REACTIONS (2)
  - Red blood cell count decreased [Recovered/Resolved]
  - Transfusion [Recovered/Resolved]
